FAERS Safety Report 16641168 (Version 3)
Quarter: 2019Q4

REPORT INFORMATION
  Report Type: Report from Study
  Country: None (occurrence: US)
  Receive Date: 20190729
  Receipt Date: 20191226
  Transmission Date: 20200122
  Serious: Yes (Hospitalization, Other)
  Sender: FDA-Public Use
  Company Number: US-ABBVIE-19K-163-2828697-00

PATIENT
  Age: 68 Year
  Sex: Male
  Weight: 95.79 kg

DRUGS (3)
  1. HUMIRA [Suspect]
     Active Substance: ADALIMUMAB
     Route: 058
     Dates: start: 20190605, end: 201907
  2. HUMIRA [Suspect]
     Active Substance: ADALIMUMAB
     Indication: COLITIS ULCERATIVE
     Route: 058
     Dates: start: 201905, end: 2019
  3. MESALAMINE. [Concomitant]
     Active Substance: MESALAMINE
     Indication: PRODUCT USED FOR UNKNOWN INDICATION

REACTIONS (13)
  - Muscle atrophy [Unknown]
  - Colitis ulcerative [Not Recovered/Not Resolved]
  - Immunodeficiency [Unknown]
  - Drug ineffective [Not Recovered/Not Resolved]
  - Weight decreased [Not Recovered/Not Resolved]
  - Gastrointestinal pain [Unknown]
  - Renal failure [Unknown]
  - Gastroenteritis viral [Recovering/Resolving]
  - Dehydration [Not Recovered/Not Resolved]
  - Malnutrition [Unknown]
  - Diarrhoea haemorrhagic [Not Recovered/Not Resolved]
  - Feeding disorder [Recovered/Resolved]
  - Asthenia [Not Recovered/Not Resolved]

NARRATIVE: CASE EVENT DATE: 2019
